FAERS Safety Report 4694050-8 (Version None)
Quarter: 2005Q2

REPORT INFORMATION
  Report Type: 
  Country: None (occurrence: None)
  Receive Date: 20050616
  Receipt Date: 20050603
  Transmission Date: 20051028
  Serious: Yes (Other)
  Sender: FDA-Public Use
  Company Number: 2005085910

PATIENT
  Age: 68 Year
  Sex: Female
  Weight: 59.8748 kg

DRUGS (7)
  1. CELEBREX [Suspect]
     Indication: BACK PAIN
     Dosage: 200 MG (200 MG, 1 IN 1 D), ORAL
     Route: 048
     Dates: start: 19950101
  2. CELEBREX [Suspect]
     Indication: MUSCULOSKELETAL STIFFNESS
     Dosage: 200 MG (200 MG, 1 IN 1 D), ORAL
     Route: 048
     Dates: start: 19950101
  3. BENADRYL [Suspect]
     Indication: INSOMNIA
     Dates: start: 20050501, end: 20050501
  4. NORVASC [Suspect]
     Indication: HYPERTENSION
  5. ZELNORM [Suspect]
     Indication: IRRITABLE BOWEL SYNDROME
  6. ASA (ACETYLSALICYLIC ACID0 [Concomitant]
  7. VITAMIN (VITAMINS) [Concomitant]

REACTIONS (12)
  - ARTHRITIS [None]
  - HEADACHE [None]
  - HYPERTENSION [None]
  - HYPERTONIC BLADDER [None]
  - INSOMNIA [None]
  - IRRITABLE BOWEL SYNDROME [None]
  - NERVOUSNESS [None]
  - OEDEMA PERIPHERAL [None]
  - PIGMENTATION DISORDER [None]
  - PLATELET COUNT INCREASED [None]
  - PRINZMETAL ANGINA [None]
  - TREMOR [None]
